FAERS Safety Report 4560541-3 (Version None)
Quarter: 2005Q1

REPORT INFORMATION
  Report Type: 
  Country: None (occurrence: None)
  Receive Date: 20050125
  Receipt Date: 20050124
  Transmission Date: 20050727
  Serious: Yes (Other)
  Sender: FDA-Public Use
  Company Number: US-GLAXOSMITHKLINE-A0541977A

PATIENT
  Sex: Female

DRUGS (3)
  1. ALBUTEROL [Suspect]
     Indication: DRUG USE FOR UNKNOWN INDICATION
     Dosage: 2PUFF FOUR TIMES PER DAY
     Route: 048
  2. ATROVENT [Concomitant]
  3. ADVIL [Concomitant]

REACTIONS (1)
  - URINARY INCONTINENCE [None]
